FAERS Safety Report 9302714 (Version 1)
Quarter: 2013Q2

REPORT INFORMATION
  Report Type: Spontaneous
  Country: GB (occurrence: None)
  Receive Date: 20130516
  Receipt Date: 20130516
  Transmission Date: 20140414
  Serious: Yes (Hospitalization)
  Sender: FDA-Public Use
  Company Number: FK201301596

PATIENT
  Age: 51 Year
  Sex: Male
  Weight: 85 kg

DRUGS (6)
  1. OXALIPLATIN [Suspect]
     Indication: COLON CANCER METASTATIC
     Route: 042
     Dates: start: 20121219
  2. 5 FU [Suspect]
     Indication: COLON CANCER METASTATIC
     Dosage: 1 IN 2 WK INTRAVENOUS BOLUS
     Route: 040
     Dates: start: 20121219
  3. LEUCOVORIN [Suspect]
     Indication: COLON CANCER METASTATIC
     Route: 042
     Dates: start: 20121219
  4. TIVOZANIB [Suspect]
     Indication: COLON CANCER METASTATIC
     Dosage: 1 IN 21 D, ORAL
     Dates: start: 20121219
  5. DEXAMETHASONE (DEXAMETHASONE) [Concomitant]
  6. TINZAPARIN [Concomitant]

REACTIONS (7)
  - Sepsis [None]
  - Dyspnoea [None]
  - Sinus tachycardia [None]
  - Pyrexia [None]
  - Device malfunction [None]
  - Malaise [None]
  - Cough [None]
